FAERS Safety Report 7981580-6 (Version None)
Quarter: 2011Q4

REPORT INFORMATION
  Report Type: 
  Country: None (occurrence: None)
  Receive Date: 20111215
  Receipt Date: 20111208
  Transmission Date: 20120403
  Serious: Yes (Death, Hospitalization, Other)
  Sender: FDA-Public Use
  Company Number: DE-UCBSA-045716

PATIENT
  Age: 56 Year
  Sex: Male

DRUGS (4)
  1. VALPROATE SODIUM [Suspect]
     Route: 048
  2. KEPPRA [Suspect]
     Route: 048
  3. ZONEGRAN [Suspect]
     Route: 048
  4. SERTRALINE HYDROCHLORIDE [Suspect]
     Route: 048

REACTIONS (3)
  - HEPATIC FAILURE [None]
  - HYPOTENSION [None]
  - COMA [None]
